FAERS Safety Report 23597337 (Version 2)
Quarter: 2024Q2

REPORT INFORMATION
  Report Type: Report from Study
  Country: US (occurrence: US)
  Receive Date: 20240305
  Receipt Date: 20240426
  Transmission Date: 20240715
  Serious: Yes (Death)
  Sender: FDA-Public Use
  Company Number: US-TAIHOP-2023-008580

PATIENT
  Age: 73 Year
  Sex: Male

DRUGS (5)
  1. LONSURF [Suspect]
     Active Substance: TIPIRACIL HYDROCHLORIDE\TRIFLURIDINE
     Indication: Colon cancer
     Dosage: CYCLE UNKNOWN
     Route: 048
     Dates: start: 20230814
  2. ATORVASTATIN [Concomitant]
     Active Substance: ATORVASTATIN
     Indication: Product used for unknown indication
  3. TELMISARTAN [Concomitant]
     Active Substance: TELMISARTAN
     Indication: Product used for unknown indication
  4. ADVAIR DISKU [Concomitant]
     Indication: Product used for unknown indication
     Dosage: AER 100/50
  5. AVASTIN [Concomitant]
     Active Substance: BEVACIZUMAB
     Indication: Product used for unknown indication

REACTIONS (3)
  - Death [Fatal]
  - Product dose omission in error [Unknown]
  - Disease progression [Not Recovered/Not Resolved]

NARRATIVE: CASE EVENT DATE: 20240227
